FAERS Safety Report 20675196 (Version 1)
Quarter: 2022Q2

REPORT INFORMATION
  Report Type: Report from Study
  Country: US (occurrence: US)
  Receive Date: 20220405
  Receipt Date: 20220405
  Transmission Date: 20220720
  Serious: Yes (Hospitalization)
  Sender: FDA-Public Use
  Company Number: US-PFIZER INC-202200469841

PATIENT
  Age: 82 Year
  Sex: Male

DRUGS (11)
  1. SPIRONOLACTONE [Suspect]
     Active Substance: SPIRONOLACTONE
     Indication: Cardiac failure
     Dosage: 25 MG, 1X/DAY
     Route: 048
     Dates: start: 20180130
  2. FUROSEMIDE [Suspect]
     Active Substance: FUROSEMIDE
     Indication: Cardiac failure
     Dosage: 80 MG, 1X/DAY
     Route: 048
     Dates: start: 20151218
  3. FUROSEMIDE [Suspect]
     Active Substance: FUROSEMIDE
     Indication: Hypertension
  4. INVESTIGATIONAL PRODUCT [Suspect]
     Active Substance: INVESTIGATIONAL PRODUCT
     Dosage: 800 MG, 2X/DAY
     Route: 048
     Dates: start: 20190501
  5. ACETAMINOPHEN [Concomitant]
     Active Substance: ACETAMINOPHEN
     Indication: Pain prophylaxis
     Dosage: 500 MG, AS NEEDED
     Route: 048
     Dates: start: 2009
  6. ATORVASTATIN [Concomitant]
     Active Substance: ATORVASTATIN
     Indication: Hyperlipidaemia
     Dosage: ALTERNATE 20 MG AND 10 MG , 1X/DAY
     Route: 048
     Dates: start: 2004
  7. LEVOTHYROXINE [Concomitant]
     Active Substance: LEVOTHYROXINE
     Indication: Thyroid disorder
     Dosage: 50 UG, EVERY OTHER DAY
     Route: 048
     Dates: start: 20151218
  8. WARFARIN [Concomitant]
     Active Substance: WARFARIN
     Indication: Atrial fibrillation
     Dosage: 2.5 MG QD AND 5 MG ON WEDNESDAYS
     Route: 048
     Dates: start: 1984
  9. WARFARIN [Concomitant]
     Active Substance: WARFARIN
     Indication: Coronary artery disease
  10. WARFARIN [Concomitant]
     Active Substance: WARFARIN
     Indication: Coagulopathy
  11. FLONASE [Concomitant]
     Active Substance: FLUTICASONE PROPIONATE
     Indication: Seasonal allergy
     Dosage: 27.5 UG, VIA INTRANASAL
     Dates: start: 20210322

REACTIONS (1)
  - Cervical vertebral fracture [Recovered/Resolved]

NARRATIVE: CASE EVENT DATE: 20210906
